FAERS Safety Report 14411045 (Version 4)
Quarter: 2018Q1

REPORT INFORMATION
  Report Type: Spontaneous
  Country: US (occurrence: US)
  Receive Date: 20180119
  Receipt Date: 20180316
  Transmission Date: 20180509
  Serious: Yes (Other)
  Sender: FDA-Public Use
  Company Number: US-JNJFOC-20180112724

PATIENT
  Age: 35 Year
  Sex: Female
  Weight: 45.81 kg

DRUGS (3)
  1. TEGRETOL [Concomitant]
     Active Substance: CARBAMAZEPINE
     Indication: SEIZURE
     Route: 065
     Dates: start: 2014
  2. TOPAMAX [Suspect]
     Active Substance: TOPIRAMATE
     Indication: EPILEPSY
     Dosage: 100 MG STRENGTHS 2 X 2 PER DAY
     Route: 048
     Dates: start: 2014, end: 20180123
  3. GABITRIL [Concomitant]
     Active Substance: TIAGABINE HYDROCHLORIDE
     Indication: SEIZURE
     Route: 065
     Dates: start: 2014

REACTIONS (4)
  - Seizure [Recovering/Resolving]
  - Drug dose omission [Unknown]
  - Incorrect dose administered [Unknown]
  - Migraine [Recovering/Resolving]

NARRATIVE: CASE EVENT DATE: 20180110
